FAERS Safety Report 7433246-9 (Version None)
Quarter: 2011Q2

REPORT INFORMATION
  Report Type: 
  Country: None (occurrence: None)
  Receive Date: 20110422
  Receipt Date: 20110419
  Transmission Date: 20111010
  Serious: Yes (Hospitalization, Other)
  Sender: FDA-Public Use
  Company Number: CHPA2011US05651

PATIENT
  Age: 69 Year
  Sex: Male
  Weight: 79.365 kg

DRUGS (2)
  1. DRUG THERAPY NOS [Concomitant]
     Indication: NEPHROLITHIASIS
     Dosage: 1 DF, QD
     Route: 048
  2. EXCEDRIN (MIGRAINE) [Suspect]
     Indication: MIGRAINE
     Dosage: 1 DF, BID
     Route: 048
     Dates: start: 20100101, end: 20110411

REACTIONS (2)
  - MIGRAINE [None]
  - DEPRESSION [None]
